FAERS Safety Report 8513839-8 (Version None)
Quarter: 2012Q3

REPORT INFORMATION
  Report Type: 
  Country: None (occurrence: None)
  Receive Date: 20120717
  Receipt Date: 20120703
  Transmission Date: 20120928
  Serious: Yes (Death, Other)
  Sender: FDA-Public Use
  Company Number: US-ACCORD-014090

PATIENT
  Age: 52 Year
  Sex: Male

DRUGS (4)
  1. ALEMTUZUMAB [Suspect]
     Dosage: DOSE: 20?5 MG
  2. TACROLIMUS [Suspect]
  3. FLUDARABINE PHOSPHATE [Suspect]
     Dosage: DOSE: 30?5 MG/M^2
  4. MELPHALAN HYDROCHLORIDE [Suspect]

REACTIONS (9)
  - OFF LABEL USE [None]
  - APHASIA [None]
  - AGITATION [None]
  - HAEMORRHAGIC STROKE [None]
  - HYPERTENSION [None]
  - LETHARGY [None]
  - MENTAL STATUS CHANGES [None]
  - POSTERIOR REVERSIBLE ENCEPHALOPATHY SYNDROME [None]
  - MICROANGIOPATHY [None]
